FAERS Safety Report 9629103 (Version 1)
Quarter: 2013Q4

REPORT INFORMATION
  Report Type: Spontaneous
  Country: IT (occurrence: IT)
  Receive Date: 20131017
  Receipt Date: 20131017
  Transmission Date: 20140711
  Serious: Yes (Hospitalization, Other)
  Sender: FDA-Public Use
  Company Number: IT-PFIZER INC-2013295642

PATIENT
  Age: 52 Year
  Sex: Female

DRUGS (3)
  1. TAVOR [Suspect]
     Dosage: 9 MG, TOTAL DOSE
     Route: 048
     Dates: start: 20130916, end: 20130916
  2. VENLAFAXINE HCL [Suspect]
     Dosage: 37.5 MG, TOTAL DOSE
     Route: 048
     Dates: start: 20130916, end: 20130916
  3. TOPAMAX [Suspect]
     Dosage: 50 MG, TOTAL DOSE
     Route: 048
     Dates: start: 20130916, end: 20130916

REACTIONS (2)
  - Drug abuse [Unknown]
  - Sopor [Unknown]
